FAERS Safety Report 12085723 (Version 2)
Quarter: 2016Q2

REPORT INFORMATION
  Report Type: Spontaneous
  Country: US (occurrence: US)
  Receive Date: 20160217
  Receipt Date: 20160524
  Transmission Date: 20160815
  Serious: Yes (Other)
  Sender: FDA-Public Use
  Company Number: US-TEVA-634835USA

PATIENT
  Age: 39 Year
  Sex: Female

DRUGS (3)
  1. ZECUITY [Suspect]
     Active Substance: SUMATRIPTAN SUCCINATE
     Route: 062
     Dates: start: 201605, end: 201605
  2. ZECUITY [Suspect]
     Active Substance: SUMATRIPTAN SUCCINATE
     Route: 062
     Dates: start: 20160207, end: 20160207
  3. NO DRUG NAME [Concomitant]

REACTIONS (8)
  - Product adhesion issue [Unknown]
  - Application site pain [Unknown]
  - Application site burn [Unknown]
  - Application site urticaria [Recovering/Resolving]
  - Wrong technique in product usage process [Unknown]
  - Application site erythema [Not Recovered/Not Resolved]
  - Product physical issue [Unknown]
  - Rash macular [Unknown]

NARRATIVE: CASE EVENT DATE: 20160207
